FAERS Safety Report 5806422-6 (Version None)
Quarter: 2008Q3

REPORT INFORMATION
  Report Type: 
  Country: None (occurrence: None)
  Receive Date: 20080708
  Receipt Date: 20080623
  Transmission Date: 20090109
  Serious: Yes (Hospitalization)
  Sender: FDA-Public Use
  Company Number: 2008S1011019

PATIENT
  Sex: Female

DRUGS (2)
  1. ALPRAZOLAM [Suspect]
  2. ALPRAZOLAM [Suspect]

REACTIONS (4)
  - HEARING IMPAIRED [None]
  - LIP AND/OR ORAL CAVITY CANCER [None]
  - PHARMACEUTICAL PRODUCT COMPLAINT [None]
  - THROAT CANCER [None]
